FAERS Safety Report 18352779 (Version 6)
Quarter: 2020Q4

REPORT INFORMATION
  Report Type: Report from Study
  Country: MX (occurrence: MX)
  Receive Date: 20201006
  Receipt Date: 20201127
  Transmission Date: 20210114
  Serious: Yes (Death, Hospitalization, Other)
  Sender: FDA-Public Use
  Company Number: MX-SEATTLE GENETICS-2020SGN04434

PATIENT
  Age: 34 Year
  Sex: Female
  Weight: 92 kg

DRUGS (1)
  1. BRENTUXIMAB VEDOTIN [Suspect]
     Active Substance: BRENTUXIMAB VEDOTIN
     Indication: HODGKIN^S DISEASE
     Dosage: 150 MILLIGRAM
     Dates: start: 20200904, end: 20201113

REACTIONS (21)
  - Dehydration [Unknown]
  - Nausea [Unknown]
  - Obstruction gastric [Unknown]
  - Feeding disorder [Unknown]
  - Abdominal pain [Unknown]
  - Cholecystitis chronic [Unknown]
  - Asthenia [Unknown]
  - General physical health deterioration [Unknown]
  - Renal disorder [Unknown]
  - Oropharyngeal pain [Unknown]
  - Blood uric acid increased [Unknown]
  - Oedema peripheral [Unknown]
  - Acute kidney injury [Recovered/Resolved]
  - Weight increased [Unknown]
  - Hyperuricaemia [Recovered/Resolved]
  - Product dose omission issue [Unknown]
  - Death [Fatal]
  - Malaise [Unknown]
  - Oesophageal candidiasis [Unknown]
  - Food intolerance [Not Recovered/Not Resolved]
  - Vomiting [Unknown]

NARRATIVE: CASE EVENT DATE: 20200911
